FAERS Safety Report 5479126-X (Version None)
Quarter: 2007Q4

REPORT INFORMATION
  Report Type: 
  Country: None (occurrence: None)
  Receive Date: 20071006
  Receipt Date: 20070925
  Transmission Date: 20080405
  Serious: Yes (Other)
  Sender: FDA-Public Use
  Company Number: US-PFIZER INC-2007082022

PATIENT
  Age: 26 Year
  Sex: Female

DRUGS (4)
  1. DILANTIN [Suspect]
     Dosage: DAILY DOSE:500MG
  2. TOPAMAX [Suspect]
  3. PHENOBARBITAL TAB [Suspect]
  4. METHYLDOPA [Concomitant]
     Indication: HYPERTENSION

REACTIONS (3)
  - ABORTION SPONTANEOUS [None]
  - DRUG EXPOSURE DURING PREGNANCY [None]
  - PREGNANCY ON ORAL CONTRACEPTIVE [None]
